FAERS Safety Report 16261272 (Version 1)
Quarter: 2019Q2

REPORT INFORMATION
  Report Type: Spontaneous
  Country: NL (occurrence: NL)
  Receive Date: 20190501
  Receipt Date: 20190501
  Transmission Date: 20190711
  Serious: Yes (Hospitalization, Other)
  Sender: FDA-Public Use
  Company Number: NL-AMNEAL PHARMACEUTICALS-2019AMN00514

PATIENT
  Age: 60 Year
  Sex: Male

DRUGS (1)
  1. AZATHIOPRINE. [Suspect]
     Active Substance: AZATHIOPRINE
     Indication: CROHN^S DISEASE
     Dosage: 200 MG, DAILY
     Route: 065

REACTIONS (4)
  - Eosinophilic myocarditis [Recovering/Resolving]
  - Acute kidney injury [Unknown]
  - Hypersensitivity [Recovering/Resolving]
  - Atrial fibrillation [Unknown]
